FAERS Safety Report 22250691 (Version 1)
Quarter: 2023Q2

REPORT INFORMATION
  Report Type: Report from Study
  Country: US (occurrence: US)
  Receive Date: 20230425
  Receipt Date: 20230425
  Transmission Date: 20230721
  Serious: Yes (Hospitalization)
  Sender: FDA-Public Use
  Company Number: US-PFIZER INC-PV202300072279

PATIENT
  Age: 61 Year
  Sex: Female
  Weight: 113.2 kg

DRUGS (24)
  1. IRINOTECAN HYDROCHLORIDE [Suspect]
     Active Substance: IRINOTECAN HYDROCHLORIDE
     Indication: Pancreatic carcinoma metastatic
     Dosage: DAY 1 AND DAY 15 OF EACH 28 DAY CYCLE
     Route: 042
     Dates: start: 20221031
  2. OXALIPLATIN [Suspect]
     Active Substance: OXALIPLATIN
     Indication: Pancreatic carcinoma metastatic
     Dosage: DAY 1 AND DAY 15 OF EACH 28 DAY CYCLE
     Route: 042
     Dates: start: 20221031
  3. BUDIGALIMAB [Suspect]
     Active Substance: BUDIGALIMAB
     Indication: Pancreatic carcinoma metastatic
     Dosage: DAY 3 OF EACH 28 DAY CYCLE, EVERY 4 WEEKS
     Route: 042
     Dates: start: 20221102
  4. GILORALIMAB [Suspect]
     Active Substance: GILORALIMAB
     Indication: Pancreatic carcinoma metastatic
     Dosage: DAY 3 OF EACH 28 DAY CYCLE, EVERY 4 WEEKS
     Route: 042
     Dates: start: 20221102
  5. FLUOROURACIL [Suspect]
     Active Substance: FLUOROURACIL
     Indication: Pancreatic carcinoma metastatic
     Dosage: DAY 1, 3, 15 AND 17 OF EACH 28 DAY CYCLE
     Route: 042
     Dates: start: 20221031
  6. LEUCOVORIN [Suspect]
     Active Substance: LEUCOVORIN
     Indication: Pancreatic carcinoma metastatic
     Dosage: DAY 1 AND DAY 15 OF EACH 28 DAY CYCLE
     Route: 042
     Dates: start: 20221031
  7. EMLA [Concomitant]
     Active Substance: LIDOCAINE\PRILOCAINE
     Indication: Pain management
     Dosage: 2.5 %, AS NEEDED
     Dates: start: 20221018
  8. DULCOLAX (BISACODYL) [Concomitant]
     Active Substance: BISACODYL
     Indication: Constipation prophylaxis
     Dosage: EVERY 1 DAYS
     Dates: start: 202209
  9. IBUPROFEN [Concomitant]
     Active Substance: IBUPROFEN
     Indication: Back pain
     Dosage: 200 MG, AS NECESSARY
     Dates: start: 20221002
  10. LANTUS [Concomitant]
     Active Substance: INSULIN GLARGINE
     Indication: Diabetes mellitus
     Dosage: EVERY EVENING, EVERY 1 DAYS
     Dates: start: 202209
  11. ZOLOFT [Concomitant]
     Active Substance: SERTRALINE HYDROCHLORIDE
     Indication: Antidepressant therapy
     Dosage: EVERY 1 DAYS
     Dates: start: 20221003
  12. PROTONIX [Concomitant]
     Active Substance: PANTOPRAZOLE SODIUM
     Indication: Dyspepsia
     Dosage: 40 MG, 2/DAYS
     Dates: start: 202209
  13. MELATONIN [Concomitant]
     Active Substance: MELATONIN
     Indication: Sleep disorder therapy
     Dosage: EVERY 1 DAYS
     Dates: start: 202209
  14. INSULIN PORK\INSULIN PURIFIED PORK [Concomitant]
     Active Substance: INSULIN PORK\INSULIN PURIFIED PORK
     Indication: Diabetes mellitus
     Dosage: 100 IU/ML, AS NEEDED
     Dates: start: 202209
  15. HUMALOG JUNIOR KWIKPEN [Concomitant]
     Active Substance: INSULIN LISPRO
     Indication: Diabetes mellitus
     Dosage: 9 IU, 3X/DAY
     Dates: start: 202209
  16. TUCKS [PARAFFIN, LIQUID;PRAMOCAINE HYDROCHLORIDE;ZINC OXIDE] [Concomitant]
     Indication: Haemorrhoids
     Dosage: MEDICATED COOLING PADS, 1 APPLICATION, AS NECESSARY
     Dates: start: 202210
  17. COMPAZINE [Concomitant]
     Active Substance: PROCHLORPERAZINE MALEATE
     Indication: Prophylaxis of nausea and vomiting
     Dosage: EVERY 6 HOURS
     Dates: start: 202210
  18. ZOFRAN [Concomitant]
     Active Substance: ONDANSETRON HYDROCHLORIDE
     Indication: Prophylaxis of nausea and vomiting
     Dosage: 8 MG, AS NEEDED
     Dates: start: 202210
  19. IMODIUM [Concomitant]
     Active Substance: LOPERAMIDE HYDROCHLORIDE
     Indication: Diarrhoea
     Dosage: 2 MG, AS NEEDED
     Dates: start: 202210
  20. AMBIEN [Concomitant]
     Active Substance: ZOLPIDEM TARTRATE
     Indication: Insomnia
     Dosage: EVERY 1 DAYS
     Dates: start: 20221128
  21. ELIQUIS [Concomitant]
     Active Substance: APIXABAN
     Indication: Embolism
     Dosage: 10 MG, 2X/DAY
     Dates: start: 20230106
  22. ACETAMINOPHEN [Concomitant]
     Active Substance: ACETAMINOPHEN
     Indication: Pain
     Dosage: 650 MG, AS NEEDED
     Dates: start: 20230220
  23. NEURONTIN [Concomitant]
     Active Substance: GABAPENTIN
     Indication: Pain
     Dosage: EVERY 1 DAYS
     Dates: start: 20230118
  24. ROXICODONE [Concomitant]
     Active Substance: OXYCODONE HYDROCHLORIDE
     Indication: Pain
     Dosage: 5 MG, 2X/DAY
     Dates: start: 20230118

REACTIONS (3)
  - Muscular weakness [Not Recovered/Not Resolved]
  - Back pain [Not Recovered/Not Resolved]
  - Peripheral sensory neuropathy [Not Recovered/Not Resolved]

NARRATIVE: CASE EVENT DATE: 20230410
